FAERS Safety Report 9247989 (Version 1)
Quarter: 2013Q1

REPORT INFORMATION
  Report Type: Spontaneous
  Country: US (occurrence: None)
  Receive Date: 20130305
  Receipt Date: 20130305
  Transmission Date: 20140127
  Serious: Yes (Other)
  Sender: FDA-Public Use
  Company Number: 163-21880-12100940

PATIENT
  Age: 64 Year
  Sex: Female
  Weight: 62.14 kg

DRUGS (6)
  1. REVLIMID [Suspect]
     Indication: PLASMA CELL MYELOMA
     Route: 048
     Dates: start: 201005, end: 2010
  2. MAGNESIUM (MAGNESIUM) [Concomitant]
  3. MULTIVITAMIN [Concomitant]
  4. TYLENOL (PARACETAMOL) [Concomitant]
  5. VITAMIN D (ERGOCALCIFEROL) [Concomitant]
  6. VITAMIN E (TOCOPHEROL) [Concomitant]

REACTIONS (1)
  - Amyloidosis [None]
